FAERS Safety Report 10037110 (Version 2)
Quarter: 2014Q2

REPORT INFORMATION
  Report Type: Spontaneous
  Country: FR (occurrence: FR)
  Receive Date: 20140326
  Receipt Date: 20140408
  Transmission Date: 20141212
  Serious: Yes (Death)
  Sender: FDA-Public Use
  Company Number: FR-ROCHE-1367493

PATIENT
  Age: 29 Year
  Sex: Female

DRUGS (9)
  1. VALIUM [Suspect]
     Indication: ANXIETY
     Route: 048
     Dates: start: 20140121, end: 20140211
  2. RISPERDAL [Suspect]
     Indication: SCHIZOPHRENIA
     Dosage: 4 MG
     Route: 048
     Dates: start: 20140121, end: 20140211
  3. RISPERDAL [Suspect]
     Dosage: 8 MG
     Route: 048
  4. TERCIAN [Suspect]
     Indication: AGITATION
     Route: 048
     Dates: start: 201401, end: 20140211
  5. TERCIAN [Suspect]
     Indication: ANXIETY
     Dosage: 50 MG
     Route: 042
     Dates: start: 20140209
  6. ABILIFY [Suspect]
     Indication: SCHIZOPHRENIA
     Route: 030
     Dates: start: 20140211, end: 20140211
  7. LYSANXIA [Suspect]
     Indication: ANXIETY
     Route: 048
     Dates: start: 20140206, end: 20140211
  8. PARKINANE [Concomitant]
     Indication: PRODUCT USED FOR UNKNOWN INDICATION
     Route: 048
     Dates: start: 20140205, end: 20140211
  9. OLANZAPINE [Concomitant]

REACTIONS (2)
  - Dysphagia [Fatal]
  - Sudden death [Fatal]
